FAERS Safety Report 9264031 (Version 4)
Quarter: 2020Q2

REPORT INFORMATION
  Report Type: Spontaneous
  Country: US (occurrence: US)
  Receive Date: 20130430
  Receipt Date: 20200424
  Transmission Date: 20200714
  Serious: Yes (Hospitalization, Disabling, Other)
  Sender: FDA-Public Use
  Company Number: US-009507513-1108USA01142

PATIENT
  Sex: Female
  Weight: 83.99 kg

DRUGS (2)
  1. FOSAMAX PLUS D [Suspect]
     Active Substance: ALENDRONATE SODIUM\CHOLECALCIFEROL
     Indication: OSTEOPOROSIS
     Dosage: 70 MG, UNK
     Route: 048
  2. FOSAMAX [Suspect]
     Active Substance: ALENDRONATE SODIUM
     Indication: OSTEOPOROSIS
     Dosage: 70 MG, QW
     Route: 048
     Dates: start: 1995, end: 2006

REACTIONS (22)
  - Hernia [Unknown]
  - Femur fracture [Not Recovered/Not Resolved]
  - Depression [Unknown]
  - Open reduction of fracture [Not Recovered/Not Resolved]
  - Medical device removal [Unknown]
  - Arthralgia [Unknown]
  - Vitamin D deficiency [Unknown]
  - Femur fracture [Not Recovered/Not Resolved]
  - Anxiety [Unknown]
  - Impaired healing [Unknown]
  - Dyspnoea [Unknown]
  - Calcium deficiency [Unknown]
  - Femur fracture [Unknown]
  - Intramedullary rod insertion [Unknown]
  - Hernia [Unknown]
  - Panic attack [Not Recovered/Not Resolved]
  - Fracture nonunion [Unknown]
  - Cognitive disorder [Unknown]
  - Bursitis [Unknown]
  - Device failure [Unknown]
  - Fall [Unknown]
  - Osteopenia [Unknown]

NARRATIVE: CASE EVENT DATE: 1995
